FAERS Safety Report 9970505 (Version 2)
Quarter: 2014Q1

REPORT INFORMATION
  Report Type: Report from Study
  Country: US (occurrence: US)
  Receive Date: 20140306
  Receipt Date: 20140306
  Transmission Date: 20141002
  Serious: No
  Sender: FDA-Public Use
  Company Number: US-ABBVIE-13P-163-1148987-00

PATIENT
  Age: 57 Year
  Sex: Female
  Weight: 56.75 kg

DRUGS (4)
  1. HUMIRA [Suspect]
     Indication: CROHN^S DISEASE
     Route: 058
     Dates: start: 201305, end: 201305
  2. HUMIRA [Suspect]
     Dosage: TWO WEEKS AFTER 160 MG DOSE
     Route: 058
     Dates: start: 2013, end: 2013
  3. HUMIRA [Suspect]
     Dosage: FOUR WEEKS AFTER 160 MG DOSE
     Route: 058
  4. OTHER MEDICATIONS [Concomitant]
     Indication: CROHN^S DISEASE

REACTIONS (3)
  - Incorrect dose administered [Not Recovered/Not Resolved]
  - Wrong technique in drug usage process [Not Recovered/Not Resolved]
  - Injection site pain [Recovered/Resolved]
